FAERS Safety Report 8259872-5 (Version None)
Quarter: 2012Q2

REPORT INFORMATION
  Report Type: 
  Country: None (occurrence: None)
  Receive Date: 20120404
  Receipt Date: 20120327
  Transmission Date: 20120825
  Serious: Yes (Death)
  Sender: FDA-Public Use
  Company Number: US-GLAXOSMITHKLINE-A0972201A

PATIENT
  Age: 45 Year
  Sex: Female

DRUGS (8)
  1. LANSOPRAZOLE [Concomitant]
  2. RANITIDINE [Concomitant]
  3. MIRTAZAPINE [Concomitant]
  4. ATIVAN [Concomitant]
  5. HYCAMTIN [Suspect]
     Indication: BRONCHIAL CARCINOMA
     Dosage: 3MGD PER DAY
     Route: 048
     Dates: start: 20111230, end: 20120103
  6. MS CONTIN [Concomitant]
  7. DEXAMETHASONE [Concomitant]
  8. GABAPENTIN [Concomitant]

REACTIONS (1)
  - DEATH [None]
